FAERS Safety Report 8303606-2 (Version None)
Quarter: 2012Q2

REPORT INFORMATION
  Report Type: 
  Country: None (occurrence: None)
  Receive Date: 20120423
  Receipt Date: 20120420
  Transmission Date: 20120825
  Serious: Yes (Other)
  Sender: FDA-Public Use
  Company Number: CH-BAYER-2012-008960

PATIENT

DRUGS (1)
  1. NEXAVAR [Suspect]

REACTIONS (2)
  - RETINAL HAEMORRHAGE [None]
  - OPTIC ISCHAEMIC NEUROPATHY [None]
